FAERS Safety Report 20080278 (Version 1)
Quarter: 2021Q4

REPORT INFORMATION
  Report Type: Spontaneous
  Country: SG (occurrence: SG)
  Receive Date: 20211117
  Receipt Date: 20211117
  Transmission Date: 20220303
  Serious: Yes (Hospitalization)
  Sender: FDA-Public Use
  Company Number: SG-MYLANLABS-2021M1084406

PATIENT
  Age: 64 Year
  Sex: Female

DRUGS (3)
  1. DOXORUBICIN [Suspect]
     Active Substance: DOXORUBICIN
     Indication: Invasive lobular breast carcinoma
     Dosage: UNK, CYCLE (RECEIVED 4 CYCLES)
     Route: 065
  2. PACLITAXEL [Suspect]
     Active Substance: PACLITAXEL
     Indication: Invasive lobular breast carcinoma
     Dosage: UNK, CYCLE (RECEIVED ONE CYCLE)
     Route: 065
  3. CYCLOPHOSPHAMIDE [Suspect]
     Active Substance: CYCLOPHOSPHAMIDE
     Indication: Invasive lobular breast carcinoma
     Dosage: UNK UNK, CYCLE (RECEIVED 4 CYCLES)
     Route: 065

REACTIONS (7)
  - Varicella zoster virus infection [Recovering/Resolving]
  - Paresis [Recovering/Resolving]
  - Fall [Unknown]
  - Radiculopathy [Unknown]
  - Spinal osteoarthritis [Unknown]
  - Intervertebral disc degeneration [Unknown]
  - Post herpetic neuralgia [Unknown]
